FAERS Safety Report 20670104 (Version 2)
Quarter: 2022Q2

REPORT INFORMATION
  Report Type: Report from Study
  Country: HU (occurrence: HU)
  Receive Date: 20220404
  Receipt Date: 20220421
  Transmission Date: 20220720
  Serious: Yes (Death, Life-Threatening, Hospitalization, Other)
  Sender: FDA-Public Use
  Company Number: HU-NOVARTISPH-NVSC2022HU067869

PATIENT
  Sex: Female

DRUGS (44)
  1. ENTRESTO [Suspect]
     Active Substance: SACUBITRIL\VALSARTAN
     Indication: Cardiac failure
     Dosage: UNK
     Route: 065
  2. PANTOPRAZOLE [Suspect]
     Active Substance: PANTOPRAZOLE
     Indication: Gastrooesophageal reflux disease
     Dosage: 40 MG, BID
     Route: 065
  3. NITRODERM [Suspect]
     Active Substance: NITROGLYCERIN
     Indication: Product used for unknown indication
     Dosage: 5 MG
     Route: 065
  4. TRAMADOL [Suspect]
     Active Substance: TRAMADOL
     Indication: Product used for unknown indication
     Dosage: UNK
     Route: 065
  5. CIPROFLOXACIN [Suspect]
     Active Substance: CIPROFLOXACIN
     Indication: Product used for unknown indication
     Dosage: UNK
     Route: 065
  6. BISOPROLOL [Suspect]
     Active Substance: BISOPROLOL
     Indication: Product used for unknown indication
     Dosage: UNK
     Route: 065
  7. DIGITOXIN [Concomitant]
     Active Substance: DIGITOXIN
     Indication: Product used for unknown indication
     Dosage: UNK
     Route: 065
     Dates: end: 202003
  8. SOTALEX MITE [Concomitant]
     Indication: Product used for unknown indication
     Dosage: UNK
     Route: 065
  9. METOPROLOL [Concomitant]
     Active Substance: METOPROLOL
     Indication: Product used for unknown indication
     Dosage: UNK
     Route: 065
  10. BETAXOLOL HYDROCHLORIDE [Concomitant]
     Active Substance: BETAXOLOL HYDROCHLORIDE
     Indication: Product used for unknown indication
     Dosage: UNK
     Route: 065
  11. DIGITOXIN [Concomitant]
     Active Substance: DIGITOXIN
     Indication: Product used for unknown indication
     Dosage: UNK
     Route: 065
  12. XARELTO [Concomitant]
     Active Substance: RIVAROXABAN
     Indication: Product used for unknown indication
     Dosage: 15 MG (IN THE MORNING)
     Route: 065
  13. ROCEPHIN [Concomitant]
     Active Substance: CEFTRIAXONE SODIUM
     Indication: Product used for unknown indication
     Dosage: UNK
     Route: 065
  14. BISOPROLOL FUMARATE [Concomitant]
     Active Substance: BISOPROLOL FUMARATE
     Indication: Product used for unknown indication
     Dosage: 7.5 MG, BID (5 MG IN THE MORNING AND 2.5 MG IN THE EVENING)
     Route: 065
  15. ALPRAZOLAM [Concomitant]
     Active Substance: ALPRAZOLAM
     Indication: Product used for unknown indication
     Dosage: 0.25 MG, QD (IN THE EVENG)
     Route: 065
  16. FUROSEMIDE [Concomitant]
     Active Substance: FUROSEMIDE
     Indication: Product used for unknown indication
     Dosage: UNK (3X1 ONCE A WEEK)
     Route: 065
  17. POTASSIUM [Concomitant]
     Active Substance: POTASSIUM
     Indication: Product used for unknown indication
     Dosage: 1 DOSAGE FORM
     Route: 065
  18. VALSARTAN [Concomitant]
     Active Substance: VALSARTAN
     Indication: Product used for unknown indication
     Dosage: 40 MG, BID
     Route: 065
  19. UREGYT [Concomitant]
     Indication: Product used for unknown indication
     Dosage: 1 DOSAGE FORM, EVERY OTHER DAY
     Route: 065
  20. SPIRONOLACTONE [Concomitant]
     Active Substance: SPIRONOLACTONE
     Indication: Product used for unknown indication
     Dosage: 0.5 DOSAGE FORM, QD (25 MG, IN THE MORNING)
     Route: 065
  21. AFLAMIN [Concomitant]
     Indication: Product used for unknown indication
     Dosage: UNK
     Route: 065
  22. LIDOCAINE [Concomitant]
     Active Substance: LIDOCAINE
     Indication: Panendoscopy
     Dosage: 10 % (SPRAY)
     Route: 065
  23. LIDOCAINE [Concomitant]
     Active Substance: LIDOCAINE
     Indication: Local anaesthesia
  24. ALBUMIN HUMAN [Concomitant]
     Active Substance: ALBUMIN HUMAN
     Indication: Product used for unknown indication
     Dosage: UNK
     Route: 065
  25. OXYGEN [Concomitant]
     Active Substance: OXYGEN
     Indication: Product used for unknown indication
     Dosage: UNK
     Route: 065
  26. SODIUM CHLORIDE [Concomitant]
     Active Substance: SODIUM CHLORIDE
     Indication: Product used for unknown indication
     Dosage: UNK
     Route: 065
  27. RINGERS SOLUTION [Concomitant]
     Active Substance: CALCIUM CHLORIDE\POTASSIUM CHLORIDE\SODIUM CHLORIDE
     Indication: Product used for unknown indication
     Dosage: UNK
     Route: 065
  28. ISODEX [Concomitant]
     Indication: Product used for unknown indication
     Dosage: 500 ML, BID
     Route: 042
  29. DEXTROSE [Concomitant]
     Active Substance: DEXTROSE
     Indication: Product used for unknown indication
     Dosage: 40 %
     Route: 065
  30. CONTROLOC [Concomitant]
     Active Substance: PANTOPRAZOLE SODIUM
     Indication: Product used for unknown indication
     Dosage: UNK, QD (1 AMPOULE IN THE MORNING)
     Route: 065
  31. KONAKION [Concomitant]
     Active Substance: PHYTONADIONE
     Indication: Product used for unknown indication
     Dosage: UNK
     Route: 065
  32. ETHAMSYLATE [Concomitant]
     Active Substance: ETHAMSYLATE
     Indication: Product used for unknown indication
     Dosage: UNK
     Route: 065
  33. TRANEXAMIC ACID [Concomitant]
     Active Substance: TRANEXAMIC ACID
     Indication: Product used for unknown indication
     Dosage: UNK
     Route: 065
  34. ENOXAPARIN SODIUM [Concomitant]
     Active Substance: ENOXAPARIN SODIUM
     Indication: Product used for unknown indication
     Dosage: 0.4 ML, QD (IN THE EVENING)
     Route: 058
  35. CARBOHYDRATES\FATTY ACIDS\MINERALS\PROTEIN\VITAMINS [Concomitant]
     Active Substance: CARBOHYDRATES\FATTY ACIDS\MINERALS\PROTEIN\VITAMINS
     Indication: Product used for unknown indication
     Dosage: UNK
     Route: 065
  36. MEROPENEM [Concomitant]
     Active Substance: MEROPENEM
     Indication: Product used for unknown indication
     Dosage: UNK
     Route: 065
  37. MAGNESIUM SULFAS [Concomitant]
     Indication: Product used for unknown indication
     Dosage: UNK
     Route: 065
  38. DIOSMIN [Concomitant]
     Active Substance: DIOSMIN
     Indication: Product used for unknown indication
     Dosage: UNK
     Route: 065
  39. KLION [Concomitant]
     Indication: Product used for unknown indication
     Dosage: UNK
     Route: 065
  40. ALDACTONE [Concomitant]
     Active Substance: SPIRONOLACTONE
     Indication: Product used for unknown indication
     Dosage: UNK
     Route: 065
  41. DIGOXIN [Concomitant]
     Active Substance: DIGOXIN
     Indication: Product used for unknown indication
     Dosage: UNK
     Route: 065
  42. AMINO ACIDS\DEXTROSE\ELECTROLYTES NOS\SOYBEAN OIL [Concomitant]
     Active Substance: AMINO ACIDS\DEXTROSE\ELECTROLYTES NOS\SOYBEAN OIL
     Indication: Product used for unknown indication
     Dosage: UNK
     Route: 065
  43. UNSPECIFIED INGREDIENT [Concomitant]
     Active Substance: UNSPECIFIED INGREDIENT
     Indication: Product used for unknown indication
     Dosage: UNK
     Route: 065
  44. FUROSEMIDE [Concomitant]
     Active Substance: FUROSEMIDE
     Indication: Product used for unknown indication
     Dosage: UNK
     Route: 065

REACTIONS (72)
  - Renal failure [Fatal]
  - Coma [Unknown]
  - Haematochezia [Recovered/Resolved]
  - Cardiac failure [Unknown]
  - Dehydration [Unknown]
  - Anaemia [Unknown]
  - Erysipelas [Unknown]
  - Pneumonia [Unknown]
  - Haematochezia [Unknown]
  - Tension [Unknown]
  - Myocardial ischaemia [Unknown]
  - Atrial fibrillation [Unknown]
  - Cholelithiasis [Unknown]
  - Cataract [Unknown]
  - Atrial flutter [Unknown]
  - Loss of consciousness [Unknown]
  - Craniocerebral injury [Unknown]
  - Encephalopathy [Unknown]
  - Cervix adenomatous polyp [Unknown]
  - Hyperbilirubinaemia [Unknown]
  - Arrhythmia [Unknown]
  - Congestive cardiomyopathy [Unknown]
  - Left ventricular hypertrophy [Unknown]
  - Cerebral arteriosclerosis [Unknown]
  - Cellulitis [Unknown]
  - Mitral valve incompetence [Unknown]
  - Gastrointestinal haemorrhage [Unknown]
  - Aortic arteriosclerosis [Unknown]
  - Sepsis [Unknown]
  - Urosepsis [Unknown]
  - Pleural effusion [Unknown]
  - Intra-abdominal fluid collection [Unknown]
  - Cerebral infarction [Unknown]
  - Azotaemia [Unknown]
  - Hyperkalaemia [Unknown]
  - Oedema peripheral [Not Recovered/Not Resolved]
  - Limb injury [Unknown]
  - Hypercholesterolaemia [Unknown]
  - Foot fracture [Unknown]
  - Spinal osteoarthritis [Unknown]
  - Intervertebral disc disorder [Unknown]
  - Muscular weakness [Unknown]
  - Decreased appetite [Unknown]
  - Weight decreased [Unknown]
  - Epigastric discomfort [Unknown]
  - Gastrooesophageal reflux disease [Unknown]
  - Chronic gastritis [Unknown]
  - Diverticulum intestinal [Unknown]
  - Bradyarrhythmia [Unknown]
  - Drug intolerance [Unknown]
  - Inflammation [Unknown]
  - Left ventricular dysfunction [Unknown]
  - Soft tissue mass [Unknown]
  - Cardiomegaly [Unknown]
  - Hepatomegaly [Unknown]
  - Pyuria [Unknown]
  - Haematoma [Unknown]
  - Condition aggravated [Unknown]
  - Urine output decreased [Unknown]
  - Obesity [Unknown]
  - Mucosal discolouration [Unknown]
  - Emphysema [Unknown]
  - Generalised oedema [Not Recovered/Not Resolved]
  - Pulse absent [Unknown]
  - Limb discomfort [Unknown]
  - Blood potassium increased [Unknown]
  - Fatigue [Unknown]
  - Hypotension [Unknown]
  - Hypertension [Unknown]
  - Blood bilirubin increased [Not Recovered/Not Resolved]
  - Jaundice [Not Recovered/Not Resolved]
  - Chromaturia [Not Recovered/Not Resolved]

NARRATIVE: CASE EVENT DATE: 20090101
